FAERS Safety Report 9805879 (Version 1)
Quarter: 2014Q1

REPORT INFORMATION
  Report Type: Spontaneous
  Country: US (occurrence: None)
  Receive Date: 20140108
  Receipt Date: 20140108
  Transmission Date: 20141002
  Serious: Yes (Hospitalization)
  Sender: FDA-Public Use
  Company Number: None

PATIENT
  Age: 61 Year
  Sex: Male
  Weight: 67.6 kg

DRUGS (2)
  1. CLINDAMYCIN [Suspect]
     Indication: POST PROCEDURAL INFECTION
     Route: 048
     Dates: start: 20130925, end: 20130930
  2. CLINDAMYCIN [Suspect]
     Indication: PROPHYLAXIS
     Route: 048
     Dates: start: 20130925, end: 20130930

REACTIONS (8)
  - Swelling face [None]
  - Eye swelling [None]
  - Rash generalised [None]
  - Rash pruritic [None]
  - Rash morbilliform [None]
  - Dyspnoea [None]
  - Heart rate increased [None]
  - Urticaria [None]
